FAERS Safety Report 11151172 (Version 1)
Quarter: 2015Q2

REPORT INFORMATION
  Report Type: Spontaneous
  Country: FI (occurrence: FI)
  Receive Date: 20150601
  Receipt Date: 20150601
  Transmission Date: 20150821
  Serious: Yes (Other)
  Sender: FDA-Public Use
  Company Number: FI-MERCK-1505FIN011370

PATIENT
  Age: 76 Year
  Sex: Female

DRUGS (3)
  1. COZAAR COMP 50 MG/12.5 MG [Suspect]
     Active Substance: HYDROCHLOROTHIAZIDE\LOSARTAN POTASSIUM
     Indication: BLOOD PRESSURE ABNORMAL
     Dosage: 50/12.5 MG, QD (ONE TABLET PER DAY)
     Route: 048
     Dates: end: 2013
  2. ORLOC [Concomitant]
     Active Substance: BISOPROLOL FUMARATE
     Dosage: 0.5 TABLET TWICE A DAY
     Route: 048
     Dates: start: 2013
  3. COZAAR COMP 50 MG/12.5 MG [Suspect]
     Active Substance: HYDROCHLOROTHIAZIDE\LOSARTAN POTASSIUM
     Dosage: 50/12.5 MG, BID (ONE TABLET IN THE MORNING AND ONE TABLET IN THE EVENING)
     Route: 048
     Dates: start: 2013

REACTIONS (6)
  - Skin atrophy [Not Recovered/Not Resolved]
  - Blood pressure increased [Unknown]
  - Contusion [Not Recovered/Not Resolved]
  - Muscular weakness [Not Recovered/Not Resolved]
  - Cataract operation [Unknown]
  - Haematoma [Not Recovered/Not Resolved]

NARRATIVE: CASE EVENT DATE: 2013
